FAERS Safety Report 15899400 (Version 3)
Quarter: 2019Q1

REPORT INFORMATION
  Report Type: Spontaneous
  Country: PL (occurrence: PL)
  Receive Date: 20190201
  Receipt Date: 20190225
  Transmission Date: 20190417
  Serious: Yes (Hospitalization, Other)
  Sender: FDA-Public Use
  Company Number: PL-AUROBINDO-AUR-APL-2019-004747

PATIENT

DRUGS (4)
  1. CLARITHROMYCIN. [Suspect]
     Active Substance: CLARITHROMYCIN
     Indication: SPINAL PAIN
     Dosage: UNK
     Route: 048
  2. CO PRESTARIUM [Concomitant]
     Indication: PRODUCT USED FOR UNKNOWN INDICATION
     Dosage: UNK, ONCE DAILY (5+5, 1X1)
     Route: 048
  3. NEOMYCIN. [Suspect]
     Active Substance: NEOMYCIN
     Indication: PRODUCT USED FOR UNKNOWN INDICATION
     Dosage: UNK
     Route: 061
  4. AMOXICILLIN+CLAVULANIC ACID FILM-COATED TABLETS [Suspect]
     Active Substance: AMOXICILLIN\CLAVULANIC ACID
     Indication: PROPHYLAXIS
     Dosage: UNK
     Route: 065

REACTIONS (25)
  - Spondylitis [Unknown]
  - Skin oedema [Recovered/Resolved]
  - Dermatitis [Unknown]
  - Drug hypersensitivity [Not Recovered/Not Resolved]
  - Toxic epidermal necrolysis [Recovered/Resolved]
  - Erythema [Recovered/Resolved]
  - Muscle oedema [Unknown]
  - Hypochromic anaemia [Recovered/Resolved]
  - Pruritus [Unknown]
  - Back pain [Recovered/Resolved]
  - Rash [Recovered/Resolved]
  - Peripheral swelling [Unknown]
  - Staphylococcal infection [Recovered/Resolved]
  - Drug ineffective [Recovered/Resolved]
  - Product use in unapproved indication [Unknown]
  - Pruritus [Recovered/Resolved]
  - Intervertebral discitis [Recovered/Resolved]
  - Skin lesion [Recovered/Resolved]
  - Purulence [Recovered/Resolved]
  - Gait disturbance [Unknown]
  - Arthralgia [Unknown]
  - Pain [Unknown]
  - Spinal pain [Unknown]
  - Drug eruption [Unknown]
  - Skin swelling [Unknown]

NARRATIVE: CASE EVENT DATE: 201505
